FAERS Safety Report 5135559-2 (Version None)
Quarter: 2006Q4

REPORT INFORMATION
  Report Type: 
  Country: None (occurrence: None)
  Receive Date: 20061026
  Receipt Date: 20061023
  Transmission Date: 20070319
  Serious: Yes (Life-Threatening, Hospitalization, Other)
  Sender: FDA-Public Use
  Company Number: AU-BRISTOL-MYERS SQUIBB COMPANY-13553300

PATIENT
  Age: 42 Year
  Sex: Male

DRUGS (4)
  1. IRBESARTAN [Suspect]
     Route: 048
  2. IBUPROFEN [Suspect]
     Route: 048
     Dates: start: 20050228
  3. CYCLOSPORINE [Suspect]
  4. PERINDOPRIL ERBUMINE [Suspect]
     Route: 048

REACTIONS (2)
  - LUDWIG ANGINA [None]
  - RENAL FAILURE ACUTE [None]
